FAERS Safety Report 10403167 (Version 1)
Quarter: 2014Q3

REPORT INFORMATION
  Report Type: Spontaneous
  Country: US (occurrence: US)
  Receive Date: 20140822
  Receipt Date: 20140822
  Transmission Date: 20150326
  Serious: Yes (Other)
  Sender: FDA-Public Use
  Company Number: US-GLAXOSMITHKLINE-A1086010A

PATIENT
  Age: 33 Year
  Sex: Female

DRUGS (1)
  1. LAMICTAL [Suspect]
     Active Substance: LAMOTRIGINE
     Indication: CONVULSION
     Dosage: 200MG UNKNOWN
     Route: 065
     Dates: start: 2011

REACTIONS (3)
  - Treatment noncompliance [Unknown]
  - Convulsion [Unknown]
  - Unable to afford prescribed medication [Unknown]

NARRATIVE: CASE EVENT DATE: 201408
